FAERS Safety Report 22383189 (Version 3)
Quarter: 2024Q1

REPORT INFORMATION
  Report Type: Spontaneous
  Country: US (occurrence: US)
  Receive Date: 20230530
  Receipt Date: 20240308
  Transmission Date: 20240410
  Serious: Yes (Hospitalization, Other)
  Sender: FDA-Public Use
  Company Number: US-PFIZER INC-2021116677

PATIENT
  Age: 85 Year
  Sex: Male
  Weight: 110.7 kg

DRUGS (12)
  1. VYNDAMAX [Suspect]
     Active Substance: TAFAMIDIS
     Indication: Amyloidosis
     Dosage: 61 MG
     Dates: start: 202101
  2. ROSUVASTATIN [Suspect]
     Active Substance: ROSUVASTATIN
     Indication: Blood cholesterol
     Dosage: 40 MG, 1X/DAY
  3. OLMESARTAN HIDROCLOROTIAZIDA [Concomitant]
     Dosage: UNK, 1X/DAY
  4. CARVEDILOL [Concomitant]
     Active Substance: CARVEDILOL
     Dosage: UNK, 2X/DAY
  5. BUMETANIDE [Concomitant]
     Active Substance: BUMETANIDE
     Dosage: UNK, 1X/DAY
  6. AMLODIPINE [Concomitant]
     Active Substance: AMLODIPINE BESYLATE
     Dosage: UNK, 1X/DAY
  7. GLIMEPIRIDE [Concomitant]
     Active Substance: GLIMEPIRIDE
     Dosage: UNK, 1X/DAY
  8. LIDOCAINE [Concomitant]
     Active Substance: LIDOCAINE
     Dosage: UNK, 1X/DAY
  9. VITAMIN C [Concomitant]
     Active Substance: ASCORBIC ACID
     Dosage: UNK, 2X/DAY
  10. GINGER ROOT [ZINGIBER OFFICINALE ROOT] [Concomitant]
  11. MONTELUKAST [Concomitant]
     Active Substance: MONTELUKAST SODIUM
     Dosage: UNK, 1X/DAY
  12. FAMOTIDINE [Concomitant]
     Active Substance: FAMOTIDINE
     Dosage: UNK, 1X/DAY

REACTIONS (10)
  - Cardiac failure congestive [Not Recovered/Not Resolved]
  - Arthralgia [Not Recovered/Not Resolved]
  - Renal impairment [Unknown]
  - Glaucoma [Unknown]
  - Balance disorder [Unknown]
  - Osteoarthritis [Unknown]
  - Dyspnoea [Unknown]
  - Chest pain [Unknown]
  - Off label use [Unknown]
  - Product use issue [Unknown]

NARRATIVE: CASE EVENT DATE: 20210101
